FAERS Safety Report 4696984-7 (Version None)
Quarter: 2005Q2

REPORT INFORMATION
  Report Type: 
  Country: None (occurrence: None)
  Receive Date: 20050127
  Receipt Date: 20050127
  Transmission Date: 20051028
  Serious: Yes (Other)
  Sender: FDA-Public Use
  Company Number: None

PATIENT
  Age: 84 Year
  Sex: Female
  Weight: 77.5651 kg

DRUGS (1)
  1. WARFARIN [Suspect]
     Indication: CEREBROVASCULAR ACCIDENT
     Dosage: 7.5 MG
     Dates: start: 20040719, end: 20040729

REACTIONS (2)
  - ASTHENIA [None]
  - NAUSEA [None]
